FAERS Safety Report 8404873-7 (Version None)
Quarter: 2012Q2

REPORT INFORMATION
  Report Type: 
  Country: None (occurrence: None)
  Receive Date: 20120601
  Receipt Date: 20111026
  Transmission Date: 20120825
  Serious: No
  Sender: FDA-Public Use
  Company Number: US-ASTRAZENECA-2011SE48988

PATIENT
  Age: 77 Year
  Sex: Female
  Weight: 103.4 kg

DRUGS (6)
  1. NEXIUM [Suspect]
     Dosage: ONE CAPSULES A DAY OF NEXIUM
     Route: 048
  2. ATACAND HCT [Suspect]
     Dosage: 16/12.5 MG
     Route: 048
  3. NEXIUM [Suspect]
     Indication: GASTROOESOPHAGEAL REFLUX DISEASE
     Route: 048
  4. NEXIUM [Suspect]
     Dosage: TWO CAPSULES OF NEXIUM
     Route: 048
  5. NEXIUM [Suspect]
     Dosage: TWICE A DAY FOR 2 WEEKS
     Route: 048
  6. ATACAND HCT [Suspect]
     Dosage: TOTAL DAILY DOSAGE 32/12.5MG
     Route: 048

REACTIONS (6)
  - GASTROINTESTINAL DISORDER [None]
  - GASTROOESOPHAGEAL REFLUX DISEASE [None]
  - DRUG PRESCRIBING ERROR [None]
  - DRUG INEFFECTIVE [None]
  - GASTRIC DISORDER [None]
  - WEIGHT DECREASED [None]
